FAERS Safety Report 7511256-0 (Version None)
Quarter: 2011Q2

REPORT INFORMATION
  Report Type: 
  Country: None (occurrence: None)
  Receive Date: 20110531
  Receipt Date: 20101229
  Transmission Date: 20111010
  Serious: Yes (Hospitalization, Other)
  Sender: FDA-Public Use
  Company Number: US-BAYER-201030600NA

PATIENT
  Age: 24 Year
  Sex: Female
  Weight: 44.444 kg

DRUGS (9)
  1. ADVIL LIQUI-GELS [Concomitant]
  2. YASMIN [Suspect]
     Indication: OLIGOMENORRHOEA
  3. PRENATAL VITAMINS [Concomitant]
  4. DROSPIRENONE AND ETHINYL ESTRADIOL [Suspect]
     Indication: CONTRACEPTION
     Dosage: UNK UNK, UNK
     Route: 048
     Dates: start: 20020501, end: 20090801
  5. NEXIUM [Concomitant]
     Indication: GASTROOESOPHAGEAL REFLUX DISEASE
  6. YASMIN [Suspect]
     Indication: CONTRACEPTION
     Dosage: UNK UNK, UNK
     Route: 048
     Dates: start: 20020501, end: 20090801
  7. YAZ [Suspect]
     Indication: CONTRACEPTION
     Dosage: UNK UNK, UNK
     Route: 048
     Dates: start: 20020501, end: 20090801
  8. TETRACYCLINE [Concomitant]
     Indication: INFECTION
  9. REGLAN [Concomitant]
     Indication: NAUSEA
     Dosage: UNK
     Dates: start: 20080929

REACTIONS (10)
  - DEEP VEIN THROMBOSIS [None]
  - CEREBROVASCULAR ACCIDENT [None]
  - MYOCARDIAL INFARCTION [None]
  - PULMONARY EMBOLISM [None]
  - STRESS [None]
  - HEPATOBILIARY SCAN ABNORMAL [None]
  - DEPRESSION [None]
  - CHOLECYSTITIS CHRONIC [None]
  - GALLBLADDER DISORDER [None]
  - MENTAL DISORDER [None]
